FAERS Safety Report 7709547-3 (Version None)
Quarter: 2011Q3

REPORT INFORMATION
  Report Type: 
  Country: None (occurrence: None)
  Receive Date: 20110825
  Receipt Date: 20110816
  Transmission Date: 20111222
  Serious: Yes (Other)
  Sender: FDA-Public Use
  Company Number: US-JNJFOC-20110602496

PATIENT
  Sex: Female
  Weight: 70.76 kg

DRUGS (6)
  1. TOPIRAMATE [Suspect]
     Indication: MIGRAINE PROPHYLAXIS
     Route: 048
  2. TOPIRAMATE [Suspect]
     Indication: PRODUCT USED FOR UNKNOWN INDICATION
     Route: 048
  3. INDOMETHACIN [Concomitant]
     Indication: INFLAMMATION
     Route: 065
     Dates: start: 20090101
  4. VERAPAMIL [Concomitant]
     Indication: HEADACHE
     Route: 048
     Dates: start: 20090101
  5. NEURONTIN [Concomitant]
     Indication: HEADACHE
     Route: 048
  6. TOPAMAX [Suspect]
     Indication: MIGRAINE PROPHYLAXIS
     Route: 048
     Dates: start: 20091201

REACTIONS (2)
  - HYPERTHYROIDISM [None]
  - WEIGHT DECREASED [None]
